FAERS Safety Report 9316994 (Version 1)
Quarter: 2013Q2

REPORT INFORMATION
  Report Type: Spontaneous
  Country: US (occurrence: US)
  Receive Date: 20130530
  Receipt Date: 20130530
  Transmission Date: 20140414
  Serious: No
  Sender: FDA-Public Use
  Company Number: US-NOVEN-12US004567

PATIENT
  Age: 7 Year
  Sex: Male
  Weight: 24.94 kg

DRUGS (3)
  1. DAYTRANA [Suspect]
     Indication: PRODUCT USED FOR UNKNOWN INDICATION
     Dosage: 10 MG, QD
     Route: 062
     Dates: start: 20120327, end: 201204
  2. DAYTRANA [Suspect]
     Dosage: 10 MG X2, QD
     Route: 062
     Dates: start: 201204, end: 20120424
  3. DAYTRANA [Suspect]
     Dosage: 20 MG, QD
     Route: 062
     Dates: start: 20120424, end: 20120426

REACTIONS (6)
  - Formication [Recovered/Resolved]
  - Hallucination, visual [Recovered/Resolved]
  - Anxiety [Recovered/Resolved]
  - Drug ineffective [Recovered/Resolved]
  - Drug prescribing error [Recovered/Resolved]
  - Wrong technique in drug usage process [Recovered/Resolved]
